FAERS Safety Report 7906981-3 (Version None)
Quarter: 2011Q4

REPORT INFORMATION
  Report Type: 
  Country: None (occurrence: None)
  Receive Date: 20111110
  Receipt Date: 20111101
  Transmission Date: 20120403
  Serious: Yes (Hospitalization)
  Sender: FDA-Public Use
  Company Number: CA-JNJFOC-20111103179

PATIENT
  Sex: Male
  Weight: 58 kg

DRUGS (1)
  1. REMICADE [Suspect]
     Indication: CROHN'S DISEASE
     Route: 042
     Dates: start: 20110401

REACTIONS (5)
  - LOOSE TOOTH [None]
  - TOOTH EXTRACTION [None]
  - TOOTH INJURY [None]
  - ROAD TRAFFIC ACCIDENT [None]
  - FACE INJURY [None]
